FAERS Safety Report 4444563-9 (Version None)
Quarter: 2004Q3

REPORT INFORMATION
  Report Type: 
  Country: None (occurrence: None)
  Receive Date: 20040909
  Receipt Date: 20040504
  Transmission Date: 20050211
  Serious: Yes (Disabling)
  Sender: FDA-Public Use
  Company Number: 200414846GDDC

PATIENT
  Age: 68 Year
  Sex: Female

DRUGS (4)
  1. DOCETAXEL [Suspect]
     Indication: BREAST CANCER
     Route: 042
     Dates: start: 20021031, end: 20030102
  2. FLUOROURACIL [Suspect]
     Indication: BREAST CANCER
     Route: 042
  3. EPIRUBICIN [Suspect]
     Indication: BREAST CANCER
     Route: 042
  4. CYCLOSPASMOL [Suspect]
     Indication: BREAST CANCER
     Route: 042

REACTIONS (8)
  - COUGH [None]
  - EMPHYSEMA [None]
  - INFLAMMATION [None]
  - LOWER RESPIRATORY TRACT INFECTION [None]
  - LUNG NEOPLASM [None]
  - METAPLASIA [None]
  - RADIATION INJURY [None]
  - RHONCHI [None]
